FAERS Safety Report 18518353 (Version 1)
Quarter: 2020Q4

REPORT INFORMATION
  Report Type: Spontaneous
  Country: QA (occurrence: QA)
  Receive Date: 20201118
  Receipt Date: 20201118
  Transmission Date: 20210114
  Serious: Yes (Life-Threatening, Hospitalization, Other)
  Sender: FDA-Public Use
  Company Number: QA-BAUSCH-BL-2020-032782

PATIENT
  Age: 26 Year
  Sex: Female

DRUGS (4)
  1. DEXAMETHASONE. [Suspect]
     Active Substance: DEXAMETHASONE
     Indication: CHOLECYSTITIS
     Route: 042
     Dates: start: 20191101, end: 20191105
  2. PARACETAMOL [Suspect]
     Active Substance: ACETAMINOPHEN
     Indication: CHOLECYSTITIS
     Route: 065
     Dates: start: 20191101, end: 20191105
  3. ONDANSETRON [Concomitant]
     Active Substance: ONDANSETRON
     Indication: CHOLECYSTITIS
     Route: 042
     Dates: start: 20191101
  4. AMPICILLIN, SULBACTAM [Concomitant]
     Active Substance: AMPICILLIN SODIUM\SULBACTAM SODIUM
     Indication: CHOLECYSTITIS
     Route: 042
     Dates: start: 20191101

REACTIONS (4)
  - Acute hepatic failure [Recovering/Resolving]
  - Hepatic encephalopathy [Recovering/Resolving]
  - Hepatotoxicity [Recovering/Resolving]
  - Hepatitis fulminant [Recovering/Resolving]

NARRATIVE: CASE EVENT DATE: 20191105
